FAERS Safety Report 8880108 (Version 1)
Quarter: 2012Q4

REPORT INFORMATION
  Report Type: 
  Country: DE (occurrence: DE)
  Receive Date: 20121101
  Receipt Date: 20121101
  Transmission Date: 20130627
  Serious: Yes (Other)
  Sender: FDA-Public Use
  Company Number: DE-UCBSA-069838

PATIENT
  Age: 27 Year
  Sex: Female

DRUGS (5)
  1. KEPPRA [Suspect]
     Indication: TEMPORAL LOBE EPILEPSY
     Route: 048
     Dates: start: 20110307
  2. MAGNESIUM [Concomitant]
     Dates: start: 2011, end: 20120204
  3. TARDYFERON [Concomitant]
     Dosage: 1 TAB/ WEEK
     Dates: start: 2011, end: 20120204
  4. FOLIOFORTE [Concomitant]
     Dosage: 1 TAB DAILY
     Dates: start: 2011, end: 20120204
  5. A-Z MAMMA [Concomitant]
     Dosage: 1 TAB DAILY
     Dates: start: 2011, end: 20120204

REACTIONS (3)
  - Premature delivery [Unknown]
  - Pregnancy [Recovered/Resolved]
  - Breast feeding [Recovered/Resolved]
